FAERS Safety Report 6668880-7 (Version None)
Quarter: 2010Q2

REPORT INFORMATION
  Report Type: 
  Country: None (occurrence: None)
  Receive Date: 20100406
  Receipt Date: 20100331
  Transmission Date: 20101027
  Serious: Yes (Hospitalization)
  Sender: FDA-Public Use
  Company Number: US-ROCHE-695009

PATIENT
  Sex: Male

DRUGS (13)
  1. PEGINTERFERON ALFA-2A [Suspect]
     Route: 058
     Dates: start: 20090903, end: 20091109
  2. PEGINTERFERON ALFA-2A [Suspect]
     Route: 058
     Dates: start: 20091113, end: 20091202
  3. PEGINTERFERON ALFA-2A [Suspect]
     Route: 058
     Dates: start: 20091216, end: 20100121
  4. PEGINTERFERON ALFA-2A [Suspect]
     Route: 058
     Dates: start: 20100122
  5. RIBAVIRIN [Suspect]
     Dosage: FREQUENCY REPORTED AS QD
     Route: 048
     Dates: start: 20080903, end: 20091109
  6. RIBAVIRIN [Suspect]
     Route: 048
     Dates: start: 20091113, end: 20091202
  7. RIBAVIRIN [Suspect]
     Route: 048
     Dates: start: 20091212, end: 20100121
  8. RIBAVIRIN [Suspect]
     Dosage: RESTARTED
     Route: 048
     Dates: start: 20100122
  9. AMITRIPTYLINE HCL [Concomitant]
     Dates: start: 20090101
  10. CELEXA [Concomitant]
     Dates: start: 20090101
  11. OMEPRAZOLE [Concomitant]
     Dates: start: 20090101
  12. KLONOPIN [Concomitant]
     Dates: start: 20090101
  13. COUMADIN [Concomitant]
     Dates: start: 20091113

REACTIONS (2)
  - DEEP VEIN THROMBOSIS [None]
  - PAIN IN EXTREMITY [None]
